FAERS Safety Report 8511934 (Version 3)
Quarter: 2014Q1

REPORT INFORMATION
  Report Type: Spontaneous
  Country: US (occurrence: US)
  Receive Date: 20120413
  Receipt Date: 20140131
  Transmission Date: 20141002
  Serious: No
  Sender: FDA-Public Use
  Company Number: US-ASTRAZENECA-2011SE62703

PATIENT
  Age: 44 Year
  Sex: Female
  Weight: 74.4 kg

DRUGS (6)
  1. NEXIUM [Suspect]
     Indication: GASTROOESOPHAGEAL REFLUX DISEASE
     Route: 048
  2. NEXIUM [Suspect]
     Indication: GASTROOESOPHAGEAL REFLUX DISEASE
     Route: 048
     Dates: end: 20140120
  3. NEXIUM [Suspect]
     Indication: GASTROOESOPHAGEAL REFLUX DISEASE
     Route: 048
  4. COREG [Concomitant]
     Indication: BLOOD PRESSURE ABNORMAL
  5. HYDROCHLOROTHIAZIDE [Concomitant]
     Indication: BLOOD PRESSURE ABNORMAL
  6. IBUPROFEN [Concomitant]
     Indication: PAIN

REACTIONS (19)
  - Arthritis [Unknown]
  - Chest pain [Unknown]
  - Fibromyalgia [Unknown]
  - Dysphagia [Unknown]
  - Dyspepsia [Unknown]
  - Musculoskeletal pain [Unknown]
  - Aphagia [Unknown]
  - Pain [Unknown]
  - Amnesia [Unknown]
  - Sensation of foreign body [Unknown]
  - Migraine [Unknown]
  - Choking sensation [Unknown]
  - Type 2 diabetes mellitus [Unknown]
  - Hypertension [Unknown]
  - Arthralgia [Unknown]
  - Arthralgia [Unknown]
  - Insomnia [Unknown]
  - Drug dose omission [Unknown]
  - Off label use [Unknown]
